FAERS Safety Report 25408630 (Version 1)
Quarter: 2025Q2

REPORT INFORMATION
  Report Type: Spontaneous
  Country: DE (occurrence: DE)
  Receive Date: 20250606
  Receipt Date: 20250606
  Transmission Date: 20250716
  Serious: Yes (Other)
  Sender: ESPERION THERAPEUTICS
  Company Number: DE-DCGMA-25205244

PATIENT
  Age: 74 Year
  Sex: Male
  Weight: 82 kg

DRUGS (6)
  1. BEMPEDOIC ACID [Suspect]
     Active Substance: BEMPEDOIC ACID
     Indication: Type IIa hyperlipidaemia
     Dosage: 180 MG, QD
     Route: 048
     Dates: start: 20241208, end: 20241211
  2. PANTOPRAZOLE SODIUM [Concomitant]
     Active Substance: PANTOPRAZOLE SODIUM
     Indication: Product used for unknown indication
     Dosage: DAILY DOSE: 20 MG EVERY 1 DAY
     Route: 065
  3. CLOPIDOGREL BISULFATE [Concomitant]
     Active Substance: CLOPIDOGREL BISULFATE
     Indication: Product used for unknown indication
     Dosage: DAILY DOSE: 75 MG EVERY 1 DAY
     Route: 065
  4. APIXABAN [Concomitant]
     Active Substance: APIXABAN
     Indication: Product used for unknown indication
     Dosage: 5 MG 1-0-1DAILY DOSE: 10 MG EVERY 1 DAY
     Route: 065
  5. TORSEMIDE [Concomitant]
     Active Substance: TORSEMIDE
     Indication: Product used for unknown indication
     Dosage: DAILY DOSE: 5 MG EVERY 1 DAY
     Route: 065
  6. PRALUENT [Concomitant]
     Active Substance: ALIROCUMAB
     Route: 058
     Dates: start: 20250123

REACTIONS (4)
  - Arrhythmia [Unknown]
  - Sleep disorder [Unknown]
  - Tinnitus [Unknown]
  - Back pain [Unknown]
